FAERS Safety Report 8462780-8 (Version None)
Quarter: 2012Q2

REPORT INFORMATION
  Report Type: 
  Country: None (occurrence: None)
  Receive Date: 20120625
  Receipt Date: 20120614
  Transmission Date: 20120825
  Serious: Yes (Hospitalization, Other)
  Sender: FDA-Public Use
  Company Number: JP-VERTEX PHARMACEUTICALS INC.-AE-2012-003624

PATIENT
  Age: 63 Year
  Sex: Female

DRUGS (8)
  1. TELAVIC (TELAPREVIR) [Suspect]
     Indication: HEPATITIS C
     Route: 048
     Dates: start: 20120209, end: 20120302
  2. TELAVIC (TELAPREVIR) [Suspect]
     Route: 048
     Dates: start: 20120308, end: 20120329
  3. TELAVIC (TELAPREVIR) [Suspect]
     Route: 048
     Dates: start: 20120330, end: 20120419
  4. TELAVIC (TELAPREVIR) [Suspect]
     Route: 048
     Dates: start: 20120421
  5. PEGINTERFERON ALFA-2A [Concomitant]
     Route: 058
     Dates: start: 20120209
  6. RIBAVIRIN [Concomitant]
     Route: 048
     Dates: start: 20120421
  7. RIBAVIRIN [Concomitant]
     Indication: HEPATITIS C
     Route: 048
     Dates: start: 20120209, end: 20120307
  8. RIBAVIRIN [Concomitant]
     Route: 048
     Dates: start: 20120308, end: 20120419

REACTIONS (5)
  - PYREXIA [None]
  - NAUSEA [None]
  - HEPATIC FUNCTION ABNORMAL [None]
  - VOMITING [None]
  - ANAEMIA [None]
